FAERS Safety Report 6835760-3 (Version None)
Quarter: 2010Q3

REPORT INFORMATION
  Report Type: 
  Country: None (occurrence: None)
  Receive Date: 20100713
  Receipt Date: 20100629
  Transmission Date: 20110219
  Serious: Yes (Hospitalization)
  Sender: FDA-Public Use
  Company Number: US-ALEXION-A201000506

PATIENT
  Sex: Male

DRUGS (12)
  1. SOLIRIS [Suspect]
     Indication: PAROXYSMAL NOCTURNAL HAEMOGLOBINURIA
     Dosage: UNK
     Route: 042
     Dates: start: 20100402
  2. CASODEX [Concomitant]
     Indication: PROSTATE CANCER
     Dosage: 50 MG, QD
  3. ACEON                              /00790702/ [Concomitant]
     Indication: HYPERTENSION
     Dosage: 8 MG, QD
  4. NORVASC [Concomitant]
     Indication: HYPERTENSION
     Dosage: 5 MG, QD
  5. PATANOL [Concomitant]
     Dosage: 1 GTT, O.U., BID
     Route: 047
  6. FOLIC ACID [Concomitant]
     Dosage: 1 MG, QD
  7. PYRIDOXINE HCL [Concomitant]
     Dosage: 100 MG, BID
  8. AMBIEN [Concomitant]
     Indication: INSOMNIA
     Dosage: 5 MG, HS, PRN
  9. PREVACID [Concomitant]
     Dosage: 30 MG, QD
  10. VITAMIN B12                        /00056201/ [Concomitant]
     Dosage: 1000 UG, QD
  11. CALCIUM [Concomitant]
     Dosage: UNK
  12. LAXATIVES [Concomitant]
     Dosage: UNK

REACTIONS (9)
  - ACUTE SINUSITIS [None]
  - ANAEMIA [None]
  - ASPARTATE AMINOTRANSFERASE INCREASED [None]
  - BLOOD POTASSIUM DECREASED [None]
  - CHROMATURIA [None]
  - HAEMOLYSIS [None]
  - INAPPROPRIATE SCHEDULE OF DRUG ADMINISTRATION [None]
  - LEUKOPENIA [None]
  - THROMBOCYTOPENIA [None]
